FAERS Safety Report 16410842 (Version 2)
Quarter: 2019Q4

REPORT INFORMATION
  Report Type: Spontaneous
  Country: JP (occurrence: JP)
  Receive Date: 20190610
  Receipt Date: 20191226
  Transmission Date: 20200122
  Serious: Yes (Death, Life-Threatening, Hospitalization, Other)
  Sender: FDA-Public Use
  Company Number: JP-009507513-1901JPN002075J

PATIENT
  Age: 69 Year
  Sex: Male
  Weight: 69 kg

DRUGS (8)
  1. BIO-THREE [Concomitant]
     Active Substance: HERBALS
     Indication: DEFAECATION DISORDER
     Dosage: 1 DOSAGE FORM, TID
     Route: 048
     Dates: start: 20181005, end: 20190130
  2. CODEINE PHOSPHATE HYDRATE [Concomitant]
     Active Substance: CODEINE PHOSPHATE
     Indication: COUGH
     Dosage: 20 MILLIGRAM, QID
     Route: 048
     Dates: start: 20181019, end: 20190126
  3. MS CONTIN [Concomitant]
     Active Substance: MORPHINE SULFATE
     Indication: DYSPNOEA
     Dosage: 10 MILLIGRAM, BID
     Route: 048
     Dates: start: 20181019, end: 20190120
  4. KEYTRUDA [Suspect]
     Active Substance: PEMBROLIZUMAB
     Indication: NON-SMALL CELL LUNG CANCER
     Dosage: 200 MILLIGRAM, Q3W
     Route: 041
     Dates: start: 20190116, end: 20190116
  5. SYMPROIC [Concomitant]
     Active Substance: NALDEMEDINE
     Indication: CONSTIPATION
     Dosage: 0.2 MILLIGRAM, QD
     Route: 048
     Dates: start: 20181019, end: 20190122
  6. LANSOPRAZOLE OD [Concomitant]
     Active Substance: LANSOPRAZOLE
     Indication: CHRONIC GASTRITIS
     Dosage: 15 MILLIGRAM, QD
     Route: 048
     Dates: start: 20181113, end: 20190121
  7. LANSOPRAZOLE OD [Concomitant]
     Active Substance: LANSOPRAZOLE
     Indication: PROPHYLAXIS AGAINST GASTROINTESTINAL ULCER
  8. NAIXAN [Concomitant]
     Active Substance: NAPROXEN SODIUM
     Indication: PYREXIA
     Dosage: 200 MILLIGRAM, TID
     Route: 048
     Dates: start: 20181022, end: 20190120

REACTIONS (5)
  - Hepatic function abnormal [Unknown]
  - Pneumonitis [Fatal]
  - Tumour lysis syndrome [Unknown]
  - Hyperbilirubinaemia [Not Recovered/Not Resolved]
  - Hyperuricaemia [Recovered/Resolved]

NARRATIVE: CASE EVENT DATE: 20190118
